FAERS Safety Report 9881079 (Version 1)
Quarter: 2014Q1

REPORT INFORMATION
  Report Type: Spontaneous
  Country: US (occurrence: US)
  Receive Date: 20140207
  Receipt Date: 20140207
  Transmission Date: 20141002
  Serious: No
  Sender: FDA-Public Use
  Company Number: US-PFIZER INC-2014034216

PATIENT
  Sex: Female

DRUGS (1)
  1. LYRICA [Suspect]
     Dosage: 1650 MG, DAILY (150MG MORNING AND 1500MG AT NIGHT)
     Route: 048

REACTIONS (2)
  - Intentional drug misuse [Unknown]
  - Somnolence [Unknown]
